FAERS Safety Report 14971887 (Version 2)
Quarter: 2018Q3

REPORT INFORMATION
  Report Type: Spontaneous
  Country: US (occurrence: US)
  Receive Date: 20180605
  Receipt Date: 20180804
  Transmission Date: 20181010
  Serious: Yes (Other)
  Sender: FDA-Public Use
  Company Number: US-009507513-1805USA001391

PATIENT
  Sex: Female

DRUGS (1)
  1. NEXPLANON [Suspect]
     Active Substance: ETONOGESTREL
     Indication: CONTRACEPTION
     Dosage: 1 IMPLANT (LEFT ARM)
     Route: 059
     Dates: start: 20150414, end: 20170714

REACTIONS (2)
  - Ill-defined disorder [Not Recovered/Not Resolved]
  - Device malfunction [Unknown]
